FAERS Safety Report 12678975 (Version 1)
Quarter: 2016Q3

REPORT INFORMATION
  Report Type: Spontaneous
  Country: US (occurrence: US)
  Receive Date: 20160824
  Receipt Date: 20160824
  Transmission Date: 20161109
  Serious: Yes (Other)
  Sender: FDA-Public Use
  Company Number: US-CIPLA LTD.-2016US17402

PATIENT

DRUGS (12)
  1. TEMOZOLOMIDE. [Suspect]
     Active Substance: TEMOZOLOMIDE
     Indication: NEUROBLASTOMA
     Dosage: 100 MG/M2, PER DAY FOR 5 DAYS, CONSOLIDATION TREATMENT, EVERY 3 WEEKS FOR 13 CYCLES
     Route: 048
  2. LOPERAMIDE [Concomitant]
     Active Substance: LOPERAMIDE
     Indication: PROPHYLAXIS
     Dosage: UNK
     Route: 065
  3. IRINOTECAN [Suspect]
     Active Substance: IRINOTECAN
     Indication: NEUROBLASTOMA
     Dosage: 20 MG/M2, PER DAY FOR 5 DAYS, CONSOLIDATION TREATMENT, EVERY 3 WEEKS FOR 13 CYCLES
     Route: 042
  4. VINCRISTINE [Suspect]
     Active Substance: VINCRISTINE
     Indication: NEUROBLASTOMA
     Dosage: UNK, CYCLE 4 AS INDUCTION CHEMOTHERAPY
     Route: 065
  5. CISPLATIN. [Suspect]
     Active Substance: CISPLATIN
     Indication: NEUROBLASTOMA
     Dosage: UNK, CYCLES 3 AND 5 AS INDUCTION CHEMOTHERAPY
     Route: 065
  6. CYCLOPHOSPHAMIDE. [Suspect]
     Active Substance: CYCLOPHOSPHAMIDE
     Indication: NEUROBLASTOMA
     Dosage: UNK, CYCLES 1, 2 AND 4 AS INDUCTION CHEMOTHERAPY
     Route: 065
  7. EPOTEIN ALFA [Concomitant]
     Dosage: UNK, ALONG WITH HEMODIALYSIS
     Route: 065
  8. ETOPOSIDE. [Suspect]
     Active Substance: ETOPOSIDE
     Indication: NEUROBLASTOMA
     Dosage: UNK, CYCLES 3 AND 5 AS INDUCTION CHEMOTHERAPY
     Route: 065
  9. CEFIXIME. [Concomitant]
     Active Substance: CEFIXIME
     Indication: PROPHYLAXIS
     Dosage: UNK
     Route: 065
  10. TOPOTECAN [Suspect]
     Active Substance: TOPOTECAN\TOPOTECAN HYDROCHLORIDE
     Indication: NEUROBLASTOMA
     Dosage: UNK, CYCLES 1 AND 2 AS INDUCTION CHEMOTHERAPY
     Route: 065
  11. DOXORUBICIN [Suspect]
     Active Substance: DOXORUBICIN
     Indication: NEUROBLASTOMA
     Dosage: UNK, CYCLE 4 AS INDUCTION CHEMOTHERAPY
     Route: 065
  12. PEGFILGRASTIM [Concomitant]
     Active Substance: PEGFILGRASTIM
     Dosage: UNK, ON DAY 6 OF EACH CYCLE OF CONSOLIDATION TREATMENT
     Route: 065

REACTIONS (4)
  - Renal failure [Unknown]
  - Hypertension [Unknown]
  - Disease progression [Unknown]
  - Posterior reversible encephalopathy syndrome [Unknown]
